FAERS Safety Report 18990286 (Version 2)
Quarter: 2021Q1

REPORT INFORMATION
  Report Type: Other
  Country: US (occurrence: US)
  Receive Date: 20210310
  Receipt Date: 20210320
  Transmission Date: 20210420
  Serious: Yes (Other)
  Sender: FDA-Public Use
  Company Number: US-ROCHE-2779573

PATIENT
  Sex: Male
  Weight: 88.53 kg

DRUGS (7)
  1. AMLODIPINE BESYLATE. [Concomitant]
     Active Substance: AMLODIPINE BESYLATE
     Dosage: 1 TABLET DAILY AS DIRECTED
     Route: 048
     Dates: start: 20190722, end: 20191218
  2. DULOXETINE HCL [Concomitant]
     Active Substance: DULOXETINE HYDROCHLORIDE
     Dosage: 1 CAPSULE EVERYDAY
     Route: 048
     Dates: start: 20190716, end: 20200217
  3. METFORMIN HYDROCHLORIDE. [Concomitant]
     Active Substance: METFORMIN HYDROCHLORIDE
     Route: 048
     Dates: start: 20190805, end: 20190805
  4. PANTOPRAZOLE SODIUM. [Concomitant]
     Active Substance: PANTOPRAZOLE SODIUM
     Dosage: 1 TABLET  1 TIME DAILY
     Route: 048
     Dates: start: 20181107, end: 20191208
  5. ESBRIET [Suspect]
     Active Substance: PIRFENIDONE
     Indication: PULMONARY FIBROSIS
     Dosage: TAKE 1 TABLET BY MOUTH 3 TIMES A DAY
     Route: 048
  6. ESBRIET [Suspect]
     Active Substance: PIRFENIDONE
     Indication: IDIOPATHIC PULMONARY FIBROSIS
  7. ASPIRIN EC [Concomitant]
     Active Substance: ASPIRIN
     Dosage: 1 TABLET DAILY AS DIRECTED
     Route: 048
     Dates: start: 20190404, end: 20190504

REACTIONS (1)
  - Neoplasm malignant [Unknown]
